FAERS Safety Report 13169453 (Version 3)
Quarter: 2019Q1

REPORT INFORMATION
  Report Type: Spontaneous
  Country: US (occurrence: US)
  Receive Date: 20170131
  Receipt Date: 20190204
  Transmission Date: 20190417
  Serious: Yes (Hospitalization)
  Sender: FDA-Public Use
  Company Number: US-ABBVIE-16K-163-1625217-00

PATIENT
  Sex: Female

DRUGS (2)
  1. HUMIRA [Suspect]
     Active Substance: ADALIMUMAB
     Indication: ANKYLOSING SPONDYLITIS
     Route: 058
  2. PREDNISONE. [Suspect]
     Active Substance: PREDNISONE
     Indication: PRODUCT USED FOR UNKNOWN INDICATION
     Route: 065

REACTIONS (19)
  - Respiratory disorder [Recovering/Resolving]
  - Loss of personal independence in daily activities [Unknown]
  - Malaise [Unknown]
  - Pneumonitis [Recovering/Resolving]
  - Herpes zoster [Unknown]
  - Gait inability [Unknown]
  - Dysstasia [Unknown]
  - Migraine [Recovering/Resolving]
  - Arthralgia [Unknown]
  - Nausea [Unknown]
  - Pain [Unknown]
  - Oedema [Unknown]
  - Ankylosing spondylitis [Unknown]
  - Herpes zoster [Recovered/Resolved]
  - Immune system disorder [Unknown]
  - Fatigue [Unknown]
  - Sensitivity to weather change [Unknown]
  - Family stress [Unknown]
  - Hypertension [Unknown]

NARRATIVE: CASE EVENT DATE: 201507
